FAERS Safety Report 18033818 (Version 2)
Quarter: 2022Q3

REPORT INFORMATION
  Report Type: Report from Study
  Country: CA (occurrence: CA)
  Receive Date: 20200716
  Receipt Date: 20220711
  Transmission Date: 20221027
  Serious: Yes (Other)
  Sender: FDA-Public Use
  Company Number: CA-GLAXOSMITHKLINE-CA2020AMR109186

PATIENT

DRUGS (2)
  1. MEPOLIZUMAB [Suspect]
     Active Substance: MEPOLIZUMAB
     Indication: Asthma
     Dosage: 100 MG, Z MONTHLY
     Route: 042
     Dates: start: 20180611
  2. CRESTOR [Suspect]
     Active Substance: ROSUVASTATIN CALCIUM
     Indication: Blood cholesterol
     Dosage: 40 MG

REACTIONS (6)
  - Myalgia [Unknown]
  - Asthma [Unknown]
  - Restless legs syndrome [Unknown]
  - Arteriosclerosis coronary artery [Unknown]
  - Dyslipidaemia [Unknown]
  - Neuropathy peripheral [Unknown]
